FAERS Safety Report 7351943-0 (Version None)
Quarter: 2011Q1

REPORT INFORMATION
  Report Type: 
  Country: None (occurrence: None)
  Receive Date: 20110310
  Receipt Date: 20110310
  Transmission Date: 20110831
  Serious: Yes (Life-Threatening, Hospitalization)
  Sender: FDA-Public Use
  Company Number: None

PATIENT
  Age: 53 Year
  Sex: Female
  Weight: 88.905 kg

DRUGS (2)
  1. ASPIRIN [Suspect]
     Indication: MYOCARDIAL INFARCTION
     Dosage: 325 MG DAILY MOUTH
     Route: 048
     Dates: start: 20071017, end: 20110104
  2. PLAVIX [Suspect]
     Indication: MYOCARDIAL INFARCTION
     Dosage: 75 MG DAILY MOUTH
     Route: 048
     Dates: start: 20071017, end: 20110104

REACTIONS (3)
  - LUNG DISORDER [None]
  - PULMONARY HAEMORRHAGE [None]
  - RESPIRATORY TRACT INFECTION [None]
